FAERS Safety Report 11912277 (Version 1)
Quarter: 2016Q1

REPORT INFORMATION
  Report Type: Spontaneous
  Country: US (occurrence: US)
  Receive Date: 20160113
  Receipt Date: 20160113
  Transmission Date: 20160526
  Serious: Yes (Death)
  Sender: FDA-Public Use
  Company Number: US-CIPLA LTD.-2016US00086

PATIENT

DRUGS (10)
  1. CARBOPLATIN. [Suspect]
     Active Substance: CARBOPLATIN
     Indication: GERM CELL CANCER
     Dosage: 333 MG/M2/DAY OVER 2 HOURS
     Route: 042
  2. DOCETAXEL. [Suspect]
     Active Substance: DOCETAXEL
     Indication: GERM CELL CANCER
     Dosage: 300 MG/M2, OVER 2 HOURS
     Route: 042
  3. MESNA. [Suspect]
     Active Substance: MESNA
     Indication: GERM CELL CANCER
     Dosage: 3,000 MG/M2/DAY OVER 96 HOURS
     Route: 042
  4. BEVACIZUMAB [Suspect]
     Active Substance: BEVACIZUMAB
     Dosage: 5 MG/KG, UNK
     Route: 042
  5. CARBOPLATIN. [Suspect]
     Active Substance: CARBOPLATIN
     Dosage: 300 MG/M2/DAY OVER 2 HOURS
     Route: 042
  6. IFOSFAMIDE. [Suspect]
     Active Substance: IFOSFAMIDE
     Indication: GERM CELL CANCER
     Dosage: 3,000 MG/M2/DAY OVER 6 HOURS
     Route: 042
  7. BEVACIZUMAB [Suspect]
     Active Substance: BEVACIZUMAB
     Indication: GERM CELL CANCER
     Dosage: 5 MG/KG, UNK
     Route: 042
  8. MELPHALAN [Suspect]
     Active Substance: MELPHALAN
     Indication: GERM CELL CANCER
     Dosage: 50 MG/M2/OVER 15 MINUTES
     Route: 042
  9. GEMCITABINE [Suspect]
     Active Substance: GEMCITABINE\GEMCITABINE HYDROCHLORIDE
     Indication: GERM CELL CANCER
     Dosage: 1800 MG/M2/DAY OVER 3 HOURS
     Route: 042
  10. ETOPOSIDE. [Suspect]
     Active Substance: ETOPOSIDE
     Indication: GERM CELL CANCER
     Dosage: 200 MG/M2 OVER 3 HOURS Q12 HOURS
     Route: 042

REACTIONS (1)
  - Cardiomyopathy [Fatal]
